FAERS Safety Report 25023482 (Version 1)
Quarter: 2025Q1

REPORT INFORMATION
  Report Type: Spontaneous
  Country: FR (occurrence: FR)
  Receive Date: 20250228
  Receipt Date: 20250228
  Transmission Date: 20250408
  Serious: Yes (Hospitalization, Other)
  Sender: AUROBINDO
  Company Number: FR-AFSSAPS-CF2025000113

PATIENT
  Age: 38 Year
  Sex: Male
  Weight: 67 kg

DRUGS (2)
  1. AMOXICILLIN [Suspect]
     Active Substance: AMOXICILLIN
     Indication: Pneumonia pneumococcal
     Dosage: 1 GRAM, 3 TIMES A DAY (PRISE DU SOIR LE 28/01/2025)
     Route: 048
     Dates: start: 20250128
  2. AMOXICILLIN\CLAVULANIC ACID [Suspect]
     Active Substance: AMOXICILLIN\CLAVULANIC ACID
     Indication: Lung disorder
     Dosage: 1 GRAM, 3 TIMES A DAY PRISE DU MATIN ET MIDI LE 28/01/2025)
     Route: 048
     Dates: start: 20250126, end: 20250128

REACTIONS (1)
  - Hepatocellular injury [Not Recovered/Not Resolved]

NARRATIVE: CASE EVENT DATE: 20250127
